FAERS Safety Report 4724471-6 (Version None)
Quarter: 2005Q3

REPORT INFORMATION
  Report Type: 
  Country: None (occurrence: None)
  Receive Date: 20050721
  Receipt Date: 20050711
  Transmission Date: 20060218
  Serious: Yes (Other)
  Sender: FDA-Public Use
  Company Number: 2005099139

PATIENT
  Age: 77 Year
  Sex: Female

DRUGS (5)
  1. DETRUSITOL SR (TOLTERODINE) [Suspect]
     Indication: URINARY INCONTINENCE
     Dosage: 4 MG (4 MG, 1 IN 1 D), ORAL
     Route: 048
     Dates: start: 20050101, end: 20050425
  2. ACTONEL [Concomitant]
  3. CO-RENITEN (ENALAPRIL MALEATE, HYDROCHLOROTHIAZIDE) [Concomitant]
  4. DEANXIT (FLUPENTIXOL, MELITRACEN) [Concomitant]
  5. OVESTIN (ESTRIOL) [Concomitant]

REACTIONS (1)
  - ANOSMIA [None]
